FAERS Safety Report 24783901 (Version 1)
Quarter: 2024Q4

REPORT INFORMATION
  Report Type: Spontaneous
  Country: US (occurrence: US)
  Receive Date: 20241227
  Receipt Date: 20241227
  Transmission Date: 20250115
  Serious: Yes (Death, Other)
  Sender: AMGEN
  Company Number: US-AMGEN-USASP2024251993

PATIENT

DRUGS (5)
  1. BEVACIZUMAB [Suspect]
     Active Substance: BEVACIZUMAB
     Indication: Ovarian cancer
     Dosage: UNK
     Route: 065
  2. BEVACIZUMAB [Suspect]
     Active Substance: BEVACIZUMAB
     Indication: BRCA1 gene mutation
  3. BEVACIZUMAB [Suspect]
     Active Substance: BEVACIZUMAB
     Indication: BRCA2 gene mutation
  4. CARBOPLATIN [Concomitant]
     Active Substance: CARBOPLATIN
     Dosage: UNK
     Route: 065
  5. PACLITAXEL [Concomitant]
     Active Substance: PACLITAXEL
     Dosage: UNK
     Route: 065

REACTIONS (2)
  - Death [Fatal]
  - Ovarian cancer [Unknown]
